FAERS Safety Report 9543262 (Version 2)
Quarter: 2013Q3

REPORT INFORMATION
  Report Type: Spontaneous
  Country: FR (occurrence: FR)
  Receive Date: 20130923
  Receipt Date: 20130923
  Transmission Date: 20140515
  Serious: Yes (Death, Hospitalization, Other)
  Sender: FDA-Public Use
  Company Number: FR-009507513-2011SP053950

PATIENT
  Age: 17 Year
  Sex: Female

DRUGS (1)
  1. MERCILON [Suspect]
     Indication: CONTRACEPTION
     Dates: start: 2007, end: 20071010

REACTIONS (3)
  - Pulmonary embolism [Fatal]
  - Eye disorder [Unknown]
  - Pain in extremity [Unknown]
